FAERS Safety Report 7974675-4 (Version None)
Quarter: 2011Q4

REPORT INFORMATION
  Report Type: 
  Country: None (occurrence: None)
  Receive Date: 20111213
  Receipt Date: 20111205
  Transmission Date: 20120403
  Serious: Yes (Hospitalization)
  Sender: FDA-Public Use
  Company Number: PHHY2011SG106522

PATIENT
  Age: 59 Year
  Sex: Female

DRUGS (2)
  1. PAMIDRONATE DISODIUM [Suspect]
     Route: 042
  2. ZOLEDRONIC ACID [Suspect]
     Indication: METASTASES TO BONE
     Route: 042

REACTIONS (2)
  - FALL [None]
  - FEMUR FRACTURE [None]
